FAERS Safety Report 17008758 (Version 1)
Quarter: 2019Q4

REPORT INFORMATION
  Report Type: Spontaneous
  Country: RU (occurrence: RU)
  Receive Date: 20191108
  Receipt Date: 20191108
  Transmission Date: 20200122
  Serious: Yes (Other)
  Sender: FDA-Public Use
  Company Number: RU-TEVA-2019-RU-1133696

PATIENT
  Age: 34 Year
  Sex: Female

DRUGS (2)
  1. CALCIUM+D3 [Concomitant]
  2. FINLEPSIN [Suspect]
     Active Substance: CARBAMAZEPINE
     Indication: PRODUCT USED FOR UNKNOWN INDICATION
     Dosage: 400 MILLIGRAM DAILY; TAKEN FROM 14 TILL 24 YEAR OLD AND THROUGH THE LAST 6 YEARS
     Route: 065

REACTIONS (3)
  - Osteonecrosis [Unknown]
  - Maternal exposure during pregnancy [Unknown]
  - Live birth [Unknown]
